FAERS Safety Report 11249657 (Version 1)
Quarter: 2015Q3

REPORT INFORMATION
  Report Type: Spontaneous
  Country: US (occurrence: US)
  Receive Date: 20150708
  Receipt Date: 20150708
  Transmission Date: 20151125
  Serious: No
  Sender: FDA-Public Use
  Company Number: US-ELI_LILLY_AND_COMPANY-US200908004213

PATIENT
  Sex: Female

DRUGS (1)
  1. GEMZAR [Suspect]
     Active Substance: GEMCITABINE HYDROCHLORIDE
     Dates: start: 20090819

REACTIONS (4)
  - Feeling abnormal [Unknown]
  - Crying [Unknown]
  - Tension [Unknown]
  - Nervousness [Unknown]

NARRATIVE: CASE EVENT DATE: 20090819
